FAERS Safety Report 8924201 (Version 1)
Quarter: 2012Q4

REPORT INFORMATION
  Report Type: Spontaneous
  Country: US (occurrence: None)
  Receive Date: 20121121
  Receipt Date: 20121121
  Transmission Date: 20130627
  Serious: Yes (Hospitalization)
  Sender: FDA-Public Use
  Company Number: None

PATIENT
  Sex: Male
  Weight: 79.4 kg

DRUGS (3)
  1. DOXORUBICIN HYDROCHLORIDE [Suspect]
  2. METHOTREXATE [Suspect]
  3. VINCRISTINE SULFATE [Suspect]

REACTIONS (1)
  - Convulsion [None]
